FAERS Safety Report 6368784-3 (Version None)
Quarter: 2009Q3

REPORT INFORMATION
  Report Type: 
  Country: None (occurrence: None)
  Receive Date: 20090922
  Receipt Date: 20090915
  Transmission Date: 20100115
  Serious: Yes (Hospitalization, Other)
  Sender: FDA-Public Use
  Company Number: CA-CELGENEUS-028-21880-09040998

PATIENT
  Sex: Female

DRUGS (2)
  1. REVLIMID [Suspect]
     Indication: MULTIPLE MYELOMA
     Route: 048
     Dates: start: 20090130, end: 20090222
  2. REVLIMID [Suspect]
     Indication: AMYLOIDOSIS

REACTIONS (6)
  - CONSTIPATION [None]
  - DIARRHOEA [None]
  - GASTROINTESTINAL OEDEMA [None]
  - NAUSEA [None]
  - PANCYTOPENIA [None]
  - VOMITING [None]
